FAERS Safety Report 7685936-0 (Version None)
Quarter: 2011Q3

REPORT INFORMATION
  Report Type: 
  Country: None (occurrence: None)
  Receive Date: 20110816
  Receipt Date: 20110803
  Transmission Date: 20111222
  Serious: Yes (Other)
  Sender: FDA-Public Use
  Company Number: PHFR2011GB02933

PATIENT
  Sex: Male

DRUGS (5)
  1. CLOZAPINE [Suspect]
     Indication: SCHIZOPHRENIA
     Dosage: 400 MG/DAY
     Route: 048
     Dates: start: 19900813
  2. LAMOTRIGINE [Concomitant]
     Dosage: 100 MG/DAY
     Route: 048
  3. FERROUS FUMARATE [Concomitant]
     Dosage: 210 (NO UNITS)
     Route: 048
  4. RANITIDINE [Concomitant]
     Dosage: 50 MG/DAY
     Route: 048
  5. CLOZAPINE [Suspect]
     Dosage: UNK
     Route: 048

REACTIONS (3)
  - LOWER RESPIRATORY TRACT INFECTION [None]
  - WHITE BLOOD CELL COUNT DECREASED [None]
  - LUNG ABSCESS [None]
